FAERS Safety Report 8000209-4 (Version None)
Quarter: 2011Q4

REPORT INFORMATION
  Report Type: 
  Country: None (occurrence: None)
  Receive Date: 20111123
  Receipt Date: 20111101
  Transmission Date: 20120403
  Serious: Yes (Hospitalization)
  Sender: FDA-Public Use
  Company Number: 336063

PATIENT
  Age: 54 Year
  Weight: 81.6 kg

DRUGS (5)
  1. GLIPIZIDE [Concomitant]
  2. METFORMIN HCL [Concomitant]
  3. VICTOZA [Suspect]
     Indication: TYPE 2 DIABETES MELLITUS
     Dosage: , SUBCUTANEOUS
     Route: 058
     Dates: start: 20110315, end: 20110720
  4. ALBUTEROL [Concomitant]
  5. ENALAPRIL MALEATE [Concomitant]

REACTIONS (1)
  - PANCREATITIS ACUTE [None]
